FAERS Safety Report 23817754 (Version 1)
Quarter: 2024Q2

REPORT INFORMATION
  Report Type: Spontaneous
  Country: US (occurrence: None)
  Receive Date: 20240506
  Receipt Date: 20240506
  Transmission Date: 20240717
  Serious: No
  Sender: FDA-Public Use
  Company Number: 2024A101030

PATIENT
  Sex: Female

DRUGS (1)
  1. FARXIGA [Suspect]
     Active Substance: DAPAGLIFLOZIN PROPANEDIOL
     Route: 048
     Dates: start: 20240313

REACTIONS (6)
  - Fatigue [Unknown]
  - Decreased activity [Unknown]
  - Blood potassium increased [Unknown]
  - Weight decreased [Unknown]
  - Renal disorder [Unknown]
  - Asthenia [Unknown]
